FAERS Safety Report 20767800 (Version 1)
Quarter: 2022Q2

REPORT INFORMATION
  Report Type: Spontaneous
  Country: CL (occurrence: CL)
  Receive Date: 20220429
  Receipt Date: 20220429
  Transmission Date: 20220721
  Serious: Yes (Other)
  Sender: FDA-Public Use
  Company Number: CL-ORGANON-O2204CHL002021

PATIENT
  Sex: Female

DRUGS (1)
  1. ETONOGESTREL [Suspect]
     Active Substance: ETONOGESTREL
     Dosage: 1 IMPLANT FOR TWO YEARS AND EIGHT MONTHS
     Route: 059
     Dates: start: 201908

REACTIONS (4)
  - Pregnancy with implant contraceptive [Not Recovered/Not Resolved]
  - Obesity [Unknown]
  - Therapeutic product ineffective [Unknown]
  - Unintended pregnancy [Not Recovered/Not Resolved]
